FAERS Safety Report 17457314 (Version 1)
Quarter: 2020Q1

REPORT INFORMATION
  Report Type: Spontaneous
  Country: US (occurrence: US)
  Receive Date: 20200225
  Receipt Date: 20200225
  Transmission Date: 20200409
  Serious: No
  Sender: FDA-Public Use
  Company Number: US-PERRIGO-19US011130

PATIENT
  Sex: Female
  Weight: 68.48 kg

DRUGS (1)
  1. SCOPOLAMINE [Suspect]
     Active Substance: SCOPOLAMINE
     Indication: MOTION SICKNESS
     Dosage: 1 MG, PRN
     Route: 062
     Dates: end: 201909

REACTIONS (3)
  - Product administration error [Recovered/Resolved]
  - Mydriasis [Unknown]
  - Drug ineffective [Unknown]
